FAERS Safety Report 7768414-X (Version None)
Quarter: 2011Q3

REPORT INFORMATION
  Report Type: 
  Country: None (occurrence: None)
  Receive Date: 20110922
  Receipt Date: 20101027
  Transmission Date: 20111222
  Serious: No
  Sender: FDA-Public Use
  Company Number: US-ASTRAZENECA-2010SE51140

PATIENT
  Age: 42 Year
  Sex: Male

DRUGS (5)
  1. ATIVAN [Concomitant]
  2. TOPAMAX [Concomitant]
  3. SEROQUEL [Suspect]
     Indication: DEPRESSION
     Route: 048
     Dates: start: 20100901
  4. CITALOPRAM HYDROBROMIDE [Concomitant]
  5. KEPPRA [Concomitant]

REACTIONS (6)
  - AMNESIA [None]
  - MALAISE [None]
  - FATIGUE [None]
  - LOSS OF CONSCIOUSNESS [None]
  - CONFUSIONAL STATE [None]
  - SOMNOLENCE [None]
